FAERS Safety Report 8421568-4 (Version None)
Quarter: 2012Q2

REPORT INFORMATION
  Report Type: 
  Country: None (occurrence: None)
  Receive Date: 20120605
  Receipt Date: 20120605
  Transmission Date: 20120825
  Serious: Yes (Other)
  Sender: FDA-Public Use
  Company Number: None

PATIENT
  Sex: Female
  Weight: 101.6057 kg

DRUGS (1)
  1. EVOXAC [Suspect]
     Indication: SJOGREN'S SYNDROME
     Dosage: 1 3X 30MG
     Dates: start: 20110606, end: 20120301

REACTIONS (3)
  - MIGRAINE [None]
  - MALAISE [None]
  - QUALITY OF LIFE DECREASED [None]
